FAERS Safety Report 10931671 (Version 3)
Quarter: 2015Q2

REPORT INFORMATION
  Report Type: Report from Study
  Country: DE (occurrence: DE)
  Receive Date: 20150319
  Receipt Date: 20150421
  Transmission Date: 20150821
  Serious: No
  Sender: FDA-Public Use
  Company Number: DE-ABBVIE-15P-114-1352478-00

PATIENT
  Age: 77 Year
  Sex: Male
  Weight: 94 kg

DRUGS (1)
  1. DUODOPA [Suspect]
     Active Substance: CARBIDOPA\LEVODOPA
     Indication: PARKINSON^S DISEASE
     Dosage: 20/5MG/ML,ACCORDING SCHEDULE, DOSE 2.6ML PER HOUR
     Route: 050

REACTIONS (19)
  - Blood pressure decreased [Not Recovered/Not Resolved]
  - Eye irritation [Unknown]
  - Mobility decreased [Unknown]
  - Wound [Unknown]
  - Incorrect dose administered [Unknown]
  - Device kink [Unknown]
  - Visual impairment [Unknown]
  - Adverse drug reaction [Unknown]
  - Device occlusion [Unknown]
  - General physical health deterioration [Unknown]
  - Hypotension [Not Recovered/Not Resolved]
  - Dysstasia [Unknown]
  - Constipation [Unknown]
  - Eye irritation [Unknown]
  - Drug ineffective [Not Recovered/Not Resolved]
  - Device alarm issue [Unknown]
  - Device misuse [Unknown]
  - Disability [Unknown]
  - Dizziness [Unknown]

NARRATIVE: CASE EVENT DATE: 201501
